FAERS Safety Report 8414329-3 (Version None)
Quarter: 2012Q2

REPORT INFORMATION
  Report Type: 
  Country: None (occurrence: None)
  Receive Date: 20120605
  Receipt Date: 20120529
  Transmission Date: 20120825
  Serious: Yes (Life-Threatening, Hospitalization, Disabling)
  Sender: FDA-Public Use
  Company Number: FR-ROCHE-750055

PATIENT
  Sex: Female
  Weight: 54 kg

DRUGS (17)
  1. MABTHERA [Suspect]
     Indication: RHEUMATOID ARTHRITIS
  2. INDAPAMIDE [Concomitant]
  3. CALCIUM CARBONATE [Concomitant]
  4. OMEPRAZOLE [Concomitant]
     Indication: PROPHYLAXIS
     Route: 048
  5. ACTEMRA [Suspect]
     Indication: RHEUMATOID ARTHRITIS
  6. FOLIC ACID [Concomitant]
  7. ARIXTRA [Concomitant]
  8. PIROXICAM [Suspect]
     Indication: RHEUMATOID ARTHRITIS
  9. ETANERCEPT [Suspect]
     Indication: RHEUMATOID ARTHRITIS
     Route: 058
  10. ACETAMINOPHEN [Concomitant]
  11. PROTELOS [Concomitant]
     Indication: OSTEOPOROSIS
     Route: 048
  12. VITAMIN D [Concomitant]
     Dosage: FORM: VIAL
  13. IMODIUM [Concomitant]
  14. PREDNISONE TAB [Concomitant]
     Indication: RHEUMATOID ARTHRITIS
     Route: 048
  15. ALUMINUM HYDROXIDE AND MAGNESIUM TRISILICATE [Concomitant]
  16. FERROUS SULFATE TAB [Concomitant]
  17. METHOTREXATE [Suspect]
     Indication: RHEUMATOID ARTHRITIS

REACTIONS (8)
  - INTESTINAL PERFORATION [None]
  - PERITONITIS [None]
  - DIVERTICULITIS [None]
  - DIFFUSE LARGE B-CELL LYMPHOMA [None]
  - LYMPHOMA [None]
  - PULMONARY EMBOLISM [None]
  - CYTOMEGALOVIRUS COLITIS [None]
  - LYMPHOPENIA [None]
